FAERS Safety Report 8051287-8 (Version None)
Quarter: 2012Q1

REPORT INFORMATION
  Report Type: 
  Country: None (occurrence: None)
  Receive Date: 20120117
  Receipt Date: 20120110
  Transmission Date: 20120608
  Serious: Yes (Hospitalization)
  Sender: FDA-Public Use
  Company Number: NL-MEDIMMUNE-MEDI-0014374

PATIENT
  Sex: Female

DRUGS (2)
  1. SYNAGIS [Suspect]
     Route: 030
     Dates: start: 20111229, end: 20111229
  2. SYNAGIS [Suspect]
     Indication: BRONCHOPULMONARY DYSPLASIA
     Route: 030
     Dates: start: 20111104, end: 20111202

REACTIONS (4)
  - DEHYDRATION [None]
  - RESPIRATORY SYNCYTIAL VIRUS TEST POSITIVE [None]
  - DIARRHOEA [None]
  - VOMITING [None]
